FAERS Safety Report 20905416 (Version 2)
Quarter: 2022Q3

REPORT INFORMATION
  Report Type: Report from Study
  Country: CA (occurrence: CA)
  Receive Date: 20220602
  Receipt Date: 20220624
  Transmission Date: 20221027
  Serious: Yes (Other)
  Sender: FDA-Public Use
  Company Number: CA-NOVARTISPH-NVSC2022CA124377

PATIENT
  Age: 78 Year
  Sex: Female

DRUGS (4)
  1. TAFINLAR [Suspect]
     Active Substance: DABRAFENIB MESYLATE
     Indication: Non-small cell lung cancer metastatic
     Dosage: 150 MG, BID
     Route: 048
     Dates: start: 20220521
  2. TAFINLAR [Suspect]
     Active Substance: DABRAFENIB MESYLATE
     Indication: BRAF gene mutation
     Dosage: 50 MG, BID
     Route: 065
  3. MEKINIST [Suspect]
     Active Substance: TRAMETINIB DIMETHYL SULFOXIDE
     Indication: Non-small cell lung cancer metastatic
     Dosage: 2 MG, QD
     Route: 048
     Dates: start: 20220521
  4. MEKINIST [Suspect]
     Active Substance: TRAMETINIB DIMETHYL SULFOXIDE
     Indication: BRAF gene mutation

REACTIONS (6)
  - Syncope [Unknown]
  - Feeling cold [Unknown]
  - Feeling hot [Unknown]
  - Chills [Unknown]
  - Vomiting [Unknown]
  - Asthenia [Unknown]

NARRATIVE: CASE EVENT DATE: 20220523
